FAERS Safety Report 11202099 (Version 1)
Quarter: 2015Q2

REPORT INFORMATION
  Report Type: Spontaneous
  Country: HR (occurrence: HR)
  Receive Date: 20150619
  Receipt Date: 20150619
  Transmission Date: 20150821
  Serious: Yes (Death, Other)
  Sender: FDA-Public Use
  Company Number: HR-ACTAVIS-2015-11969

PATIENT
  Age: 45 Year
  Sex: Female

DRUGS (4)
  1. IRINOTECAN [Suspect]
     Active Substance: IRINOTECAN
     Indication: COLORECTAL CANCER STAGE IV
     Dosage: 180 MG/M2, TOTAL( IN 2 HOURS INFUSION), DAY 1
     Route: 042
  2. FLUOROURACIL. [Suspect]
     Active Substance: FLUOROURACIL
     Indication: COLORECTAL CANCER STAGE IV
     Dosage: 400 MG/M2, TOTAL, DAY 1
     Route: 040
  3. FLUOROURACIL. [Suspect]
     Active Substance: FLUOROURACIL
     Dosage: 2400 MG/M2, TOTAL, 48 HOURS INFUSION DURING DAY 1 AND 2
     Route: 042
  4. LEUCOVORIN                         /00566701/ [Suspect]
     Active Substance: LEUCOVORIN
     Indication: COLORECTAL CANCER STAGE IV
     Dosage: 400 MG/M2, TOTAL( IN 2 HOURS INFUSION),DAY 1
     Route: 042

REACTIONS (1)
  - Posterior reversible encephalopathy syndrome [Fatal]
